FAERS Safety Report 9908103 (Version 6)
Quarter: 2014Q4

REPORT INFORMATION
  Report Type: Report from Study
  Country: CA (occurrence: CA)
  Receive Date: 20140219
  Receipt Date: 20141021
  Transmission Date: 20150529
  Serious: Yes (Other)
  Sender: FDA-Public Use
  Company Number: CA-ROCHE-1235142

PATIENT
  Sex: Female
  Weight: 84 kg

DRUGS (33)
  1. VITAMIN C [Concomitant]
     Active Substance: ASCORBIC ACID
  2. SYMBICORT [Concomitant]
     Active Substance: BUDESONIDE\FORMOTEROL FUMARATE DIHYDRATE
  3. FUROSEMIDE. [Concomitant]
     Active Substance: FUROSEMIDE
  4. PRISTIQ EXTENDED RELEASE [Concomitant]
     Active Substance: DESVENLAFAXINE SUCCINATE
  5. LYRICA [Concomitant]
     Active Substance: PREGABALIN
  6. NAPROXEN. [Concomitant]
     Active Substance: NAPROXEN
  7. BENADRYL [Concomitant]
     Active Substance: DIPHENHYDRAMINE HYDROCHLORIDE
     Indication: PREMEDICATION
  8. PANTOPRAZOLE [Concomitant]
     Active Substance: PANTOPRAZOLE SODIUM
  9. THYROXINE [Concomitant]
     Active Substance: LEVOTHYROXINE
  10. BACLOFEN. [Concomitant]
     Active Substance: BACLOFEN
  11. FOLIC ACID. [Concomitant]
     Active Substance: FOLIC ACID
  12. CLONIDINE. [Concomitant]
     Active Substance: CLONIDINE
  13. MS CONTIN [Concomitant]
     Active Substance: MORPHINE SULFATE
  14. TRAZODONE HYDROCHLORIDE. [Concomitant]
     Active Substance: TRAZODONE HYDROCHLORIDE
  15. ESTRACE [Concomitant]
     Active Substance: ESTRADIOL
  16. BRICANYL [Concomitant]
     Active Substance: TERBUTALINE SULFATE
  17. ISONIAZID. [Suspect]
     Active Substance: ISONIAZID
     Indication: TUBERCULOSIS
     Route: 065
  18. VITAMIN A [Concomitant]
     Active Substance: VITAMIN A
  19. RAMIPRIL. [Concomitant]
     Active Substance: RAMIPRIL
  20. SALAGEN [Concomitant]
     Active Substance: PILOCARPINE HYDROCHLORIDE
  21. THEOPHYLLINE [Concomitant]
     Active Substance: THEOPHYLLINE ANHYDROUS
  22. ACTEMRA [Suspect]
     Active Substance: TOCILIZUMAB
     Route: 042
     Dates: start: 20131106
  23. ONDANSETRON [Concomitant]
     Active Substance: ONDANSETRON
  24. FENTANYL TRANSDERMAL SYSTEM [Concomitant]
     Active Substance: FENTANYL
  25. MICRO-K [Concomitant]
     Active Substance: POTASSIUM CHLORIDE
  26. SOLU-CORTEF [Concomitant]
     Active Substance: HYDROCORTISONE SODIUM SUCCINATE
     Indication: PREMEDICATION
     Route: 042
  27. ACTEMRA [Suspect]
     Active Substance: TOCILIZUMAB
     Indication: RHEUMATOID ARTHRITIS
     Route: 042
     Dates: start: 20130507
  28. DOMPERIDONE [Concomitant]
     Active Substance: DOMPERIDONE
  29. RITALIN [Concomitant]
     Active Substance: METHYLPHENIDATE HYDROCHLORIDE
  30. SENOKOT [Concomitant]
     Active Substance: SENNOSIDES
  31. DOCUSATE [Concomitant]
     Active Substance: DOCUSATE
  32. LORAZEPAM. [Concomitant]
     Active Substance: LORAZEPAM
  33. ACCOLATE [Concomitant]
     Active Substance: ZAFIRLUKAST

REACTIONS (3)
  - Weight increased [Not Recovered/Not Resolved]
  - Kyphosis [Recovering/Resolving]
  - Rash [Not Recovered/Not Resolved]
